FAERS Safety Report 20996059 (Version 1)
Quarter: 2022Q2

REPORT INFORMATION
  Report Type: Spontaneous
  Country: US (occurrence: US)
  Receive Date: 20220623
  Receipt Date: 20220623
  Transmission Date: 20220721
  Serious: Yes (Other)
  Sender: FDA-Public Use
  Company Number: US-PURDUE-USA-2020-0217336

PATIENT
  Sex: Male

DRUGS (2)
  1. HYDROCODONE BITARTRATE AND ACETAMINOPHEN [Suspect]
     Active Substance: ACETAMINOPHEN\HYDROCODONE BITARTRATE
     Indication: Product used for unknown indication
     Dosage: 5-500MG
     Route: 048
  2. HYDROCODONE BITARTRATE AND ACETAMINOPHEN [Suspect]
     Active Substance: ACETAMINOPHEN\HYDROCODONE BITARTRATE
     Dosage: 5-325MG
     Route: 048
     Dates: end: 20210326

REACTIONS (12)
  - Drug dependence [Unknown]
  - Drug withdrawal syndrome [Not Recovered/Not Resolved]
  - Mood swings [Unknown]
  - Anxiety [Unknown]
  - Muscle spasms [Unknown]
  - Aphasia [Unknown]
  - Pain [Unknown]
  - Emotional distress [Unknown]
  - Nightmare [Unknown]
  - Illness [Unknown]
  - Vomiting [Unknown]
  - Agitation [Unknown]
